FAERS Safety Report 8157609 (Version 3)
Quarter: 2013Q2

REPORT INFORMATION
  Report Type: Spontaneous
  Country: US (occurrence: US)
  Receive Date: 20110927
  Receipt Date: 20130401
  Transmission Date: 20140414
  Serious: No
  Sender: FDA-Public Use
  Company Number: US-ASTRAZENECA-2011SE42720

PATIENT
  Age: 53 Year
  Sex: Female

DRUGS (4)
  1. SEROQUEL [Suspect]
     Indication: BIPOLAR DISORDER
     Dosage: 50 MG IN MORNING, 100 MG IN AFTERNOON AND 200 MG AT NIGHT
     Route: 048
     Dates: start: 2000
  2. SEROQUEL [Suspect]
     Indication: BIPOLAR DISORDER
     Dosage: 200 MG AT NIGHT AND 50 MG THREE TIMES A DAY
     Route: 048
  3. LAMICTAL [Concomitant]
  4. EFFEXOR [Concomitant]

REACTIONS (5)
  - Aggression [Unknown]
  - Depression [Unknown]
  - Bipolar disorder [Unknown]
  - Wrong technique in drug usage process [Unknown]
  - Drug dose omission [Unknown]
